FAERS Safety Report 15544212 (Version 4)
Quarter: 2018Q4

REPORT INFORMATION
  Report Type: Spontaneous
  Country: US (occurrence: US)
  Receive Date: 20181024
  Receipt Date: 20181228
  Transmission Date: 20190205
  Serious: Yes (Other)
  Sender: FDA-Public Use
  Company Number: US-AMGEN INC.-USASP2018147500

PATIENT
  Age: 37 Year
  Sex: Female
  Weight: 78.64 kg

DRUGS (11)
  1. LANTUS [Concomitant]
     Active Substance: INSULIN GLARGINE
     Dosage: 100 UNIT, QHS
     Route: 058
     Dates: start: 20180103
  2. DEPAKOTE [Concomitant]
     Active Substance: DIVALPROEX SODIUM
     Dosage: 250 MG, UNK
  3. ASPIRIN. [Concomitant]
     Active Substance: ASPIRIN
     Dosage: 81 MG, QD
     Route: 048
     Dates: start: 20180619
  4. ATORVASTATIN CALCIUM. [Concomitant]
     Active Substance: ATORVASTATIN CALCIUM
     Dosage: 40 MG, QHS
     Route: 048
     Dates: start: 20180612
  5. AIMOVIG [Suspect]
     Active Substance: ERENUMAB-AOOE
     Indication: MIGRAINE WITHOUT AURA
     Dosage: UNK
     Route: 065
     Dates: start: 20181010, end: 20181010
  6. DIVALPROEX SODIUM. [Concomitant]
     Active Substance: DIVALPROEX SODIUM
     Dosage: 250 MG, QD (2 TABLETS DAILY)
     Route: 048
  7. HUMALOG [Concomitant]
     Active Substance: INSULIN LISPRO
     Dosage: 100 UNIT, QHS
     Route: 058
     Dates: start: 20180103
  8. PRAMIPEXOLE DIHYDROCHLORIDE. [Concomitant]
     Active Substance: PRAMIPEXOLE DIHYDROCHLORIDE
     Dosage: 0.5 MG, QHS
     Route: 048
     Dates: start: 20180416
  9. PROMETHAZINE HCL [Concomitant]
     Active Substance: PROMETHAZINE HYDROCHLORIDE
     Dosage: 25 MG, TID
     Route: 048
     Dates: start: 20180813
  10. TIZANIDINE HCL [Concomitant]
     Active Substance: TIZANIDINE HYDROCHLORIDE
     Indication: MIGRAINE
     Dosage: 2 MG, TID
     Route: 048
     Dates: start: 20180413
  11. BYETTA [Concomitant]
     Active Substance: EXENATIDE
     Dosage: 5 MUG, UNK (PEN INJECTOR)
     Route: 058
     Dates: start: 20180913

REACTIONS (7)
  - Dysphagia [Unknown]
  - Aphasia [Unknown]
  - Balance disorder [Unknown]
  - Migraine [Unknown]
  - Urticaria [Unknown]
  - Seizure [Unknown]
  - Vomiting [Unknown]

NARRATIVE: CASE EVENT DATE: 20181010
